FAERS Safety Report 6165735-1 (Version None)
Quarter: 2009Q2

REPORT INFORMATION
  Report Type: 
  Country: None (occurrence: None)
  Receive Date: 20090423
  Receipt Date: 20081217
  Transmission Date: 20091009
  Serious: Yes (Hospitalization, Disabling, Other)
  Sender: FDA-Public Use
  Company Number: US-BAXTER-2009BH006214

PATIENT
  Age: 5 Year
  Sex: Male

DRUGS (1)
  1. HIGHLY CONCENTRATED POTASSIUM CHLORIDE INJECTION IN PLASTIC CONTAINER [Suspect]
     Indication: DRUG USE FOR UNKNOWN INDICATION
     Route: 042
     Dates: start: 20060714, end: 20060715

REACTIONS (6)
  - ABDOMINAL PAIN [None]
  - CARDIO-RESPIRATORY ARREST [None]
  - DIARRHOEA [None]
  - HEPATIC FAILURE [None]
  - HYPOXIC ENCEPHALOPATHY [None]
  - OVERDOSE [None]
